FAERS Safety Report 13264457 (Version 1)
Quarter: 2017Q1

REPORT INFORMATION
  Report Type: Spontaneous
  Country: US (occurrence: US)
  Receive Date: 20170222
  Receipt Date: 20170222
  Transmission Date: 20170428
  Serious: No
  Sender: FDA-Public Use
  Company Number: None

PATIENT
  Age: 66 Year
  Sex: Male
  Weight: 98 kg

DRUGS (1)
  1. VALSARTAN. [Suspect]
     Active Substance: VALSARTAN
     Route: 048
     Dates: start: 20151116, end: 20151118

REACTIONS (2)
  - Influenza like illness [None]
  - Arthralgia [None]

NARRATIVE: CASE EVENT DATE: 20151118
